FAERS Safety Report 7604190-9 (Version None)
Quarter: 2011Q3

REPORT INFORMATION
  Report Type: 
  Country: None (occurrence: None)
  Receive Date: 20110712
  Receipt Date: 20110707
  Transmission Date: 20111222
  Serious: Yes (Disabling)
  Sender: FDA-Public Use
  Company Number: US-MERCK-1106USA03165

PATIENT
  Age: 40 Year
  Sex: Male

DRUGS (2)
  1. ISENTRESS [Suspect]
     Indication: HIV INFECTION
     Route: 048
     Dates: start: 20110501, end: 20110601
  2. TRUVADA [Concomitant]
     Route: 065

REACTIONS (1)
  - OEDEMA PERIPHERAL [None]
